FAERS Safety Report 8279554-3 (Version None)
Quarter: 2012Q2

REPORT INFORMATION
  Report Type: 
  Country: None (occurrence: None)
  Receive Date: 20120412
  Receipt Date: 20110623
  Transmission Date: 20120825
  Serious: No
  Sender: FDA-Public Use
  Company Number: US-ASTRAZENECA-2011SE38011

PATIENT
  Sex: Female

DRUGS (1)
  1. NEXIUM [Suspect]
     Route: 048
     Dates: start: 20110609

REACTIONS (4)
  - WRONG DRUG ADMINISTERED [None]
  - DRUG INEFFECTIVE [None]
  - SELF-MEDICATION [None]
  - GASTROOESOPHAGEAL REFLUX DISEASE [None]
